FAERS Safety Report 8554140-6 (Version None)
Quarter: 2012Q3

REPORT INFORMATION
  Report Type: 
  Country: None (occurrence: None)
  Receive Date: 20120731
  Receipt Date: 20120727
  Transmission Date: 20120928
  Serious: Yes (Other)
  Sender: FDA-Public Use
  Company Number: PHEH2012US012654

PATIENT
  Sex: Female

DRUGS (1)
  1. VALTURNA [Suspect]

REACTIONS (5)
  - TYPE 2 DIABETES MELLITUS [None]
  - DIARRHOEA [None]
  - ABDOMINAL DISCOMFORT [None]
  - BLOOD PRESSURE INADEQUATELY CONTROLLED [None]
  - GASTROINTESTINAL DISORDER [None]
